FAERS Safety Report 8565000-9 (Version None)
Quarter: 2012Q3

REPORT INFORMATION
  Report Type: 
  Country: None (occurrence: None)
  Receive Date: 20120803
  Receipt Date: 20120730
  Transmission Date: 20120928
  Serious: Yes (Other)
  Sender: FDA-Public Use
  Company Number: US-PFIZER INC-2012185499

PATIENT
  Sex: Male
  Weight: 72.562 kg

DRUGS (1)
  1. FLECTOR [Suspect]
     Indication: PAIN
     Dosage: UNK, ONCE
     Dates: start: 20120728, end: 20120729

REACTIONS (4)
  - DRUG INEFFECTIVE [None]
  - DYSPNOEA [None]
  - HEART RATE INCREASED [None]
  - NERVOUSNESS [None]
